FAERS Safety Report 6818847-0 (Version None)
Quarter: 2010Q2

REPORT INFORMATION
  Report Type: 
  Country: None (occurrence: None)
  Receive Date: 20100630
  Receipt Date: 20100625
  Transmission Date: 20101027
  Serious: Yes (Death)
  Sender: FDA-Public Use
  Company Number: 2010SP035022

PATIENT

DRUGS (2)
  1. TEMODAL [Suspect]
     Indication: DRUG USE FOR UNKNOWN INDICATION
  2. PANTOZOL [Concomitant]

REACTIONS (1)
  - HEPATIC FAILURE [None]
